FAERS Safety Report 4441624-5 (Version None)
Quarter: 2004Q3

REPORT INFORMATION
  Report Type: 
  Country: None (occurrence: None)
  Receive Date: 20040907
  Receipt Date: 20040729
  Transmission Date: 20050211
  Serious: Yes (Other)
  Sender: FDA-Public Use
  Company Number: 200415783US

PATIENT
  Sex: Female

DRUGS (3)
  1. BENZACLIN [Suspect]
     Indication: ACNE
     Dosage: DOSE: UNK
     Dates: start: 20040723, end: 20040724
  2. BENZAMYCIN [Concomitant]
  3. CETAPHIL [Concomitant]

REACTIONS (2)
  - PHARMACEUTICAL PRODUCT COMPLAINT [None]
  - SKIN HYPOPIGMENTATION [None]
